FAERS Safety Report 21130359 (Version 1)
Quarter: 2022Q3

REPORT INFORMATION
  Report Type: Other
  Country: AE (occurrence: None)
  Receive Date: 20220726
  Receipt Date: 20220726
  Transmission Date: 20221027
  Serious: Yes (Other)
  Sender: FDA-Public Use
  Company Number: AE-ROCHE-3139439

PATIENT
  Sex: Female

DRUGS (2)
  1. OCREVUS [Suspect]
     Active Substance: OCRELIZUMAB
     Indication: Primary progressive multiple sclerosis
     Route: 065
     Dates: start: 200806, end: 200912
  2. TYSABRI [Concomitant]
     Active Substance: NATALIZUMAB
     Indication: Multiple sclerosis
     Dates: start: 201002, end: 201312

REACTIONS (9)
  - Demyelination [Unknown]
  - Myelopathy [Unknown]
  - Gait inability [Unknown]
  - Musculoskeletal stiffness [Unknown]
  - Muscle spasms [Unknown]
  - Drug ineffective [Unknown]
  - JC polyomavirus test positive [Unknown]
  - Hypoaesthesia [Unknown]
  - Muscular weakness [Unknown]
